FAERS Safety Report 9769215 (Version 2)
Quarter: 2014Q3

REPORT INFORMATION
  Report Type: Spontaneous
  Country: US (occurrence: None)
  Receive Date: 20130904
  Receipt Date: 20140804
  Transmission Date: 20150326
  Serious: Yes (Death)
  Sender: FDA-Public Use
  Company Number: 1713747-2013-99944

PATIENT
  Age: 59 Year
  Sex: Male
  Weight: 75.3 kg

DRUGS (24)
  1. OPTIFLUX 180 NRE [Concomitant]
  2. FRESENIUS COMBISET 2008 [Concomitant]
  3. NORVSAC (AMLODIPINE) [Concomitant]
  4. LANTUS SC (INSULIN GLARGINE) [Concomitant]
  5. PROGRAF [Concomitant]
     Active Substance: TACROLIMUS\TACROLIMUS ANHYDROUS
  6. HYDRALAZINE [Concomitant]
     Active Substance: HYDRALAZINE HYDROCHLORIDE
  7. JANUVIA [Concomitant]
     Active Substance: SITAGLIPTIN PHOSPHATE
  8. PIOGLITAZONE HCL- GLIPERAMIDE (DUETACT) [Concomitant]
  9. CELLCEPT [Concomitant]
     Active Substance: MYCOPHENOLATE MOFETIL\MYCOPHENOLATE MOFETIL HYDROCHLORIDE
  10. SODIUM BICARBONATE. [Concomitant]
     Active Substance: SODIUM BICARBONATE
  11. COREG [Concomitant]
     Active Substance: CARVEDILOL
  12. FLUDROCORTISONE [Concomitant]
     Active Substance: FLUDROCORTISONE
  13. FUROSEMIDE. [Concomitant]
     Active Substance: FUROSEMIDE
  14. LANTUS [Concomitant]
     Active Substance: INSULIN GLARGINE
  15. ASPIRIN. [Concomitant]
     Active Substance: ASPIRIN
  16. ERGOCALCIFEROL. [Concomitant]
     Active Substance: ERGOCALCIFEROL
  17. GLIMEPRIDE- PIOGLITAZONE [Concomitant]
  18. ZOCOR [Concomitant]
     Active Substance: SIMVASTATIN
  19. CALCITRIOL. [Concomitant]
     Active Substance: CALCITRIOL
  20. DOCUSATE [Concomitant]
     Active Substance: DOCUSATE
  21. 0.9% SODIUM CHLORIDE INJECTION, USP IN MINI-BAG PLUS CONTAINER [Suspect]
     Active Substance: SODIUM CHLORIDE
     Indication: FLUID REPLACEMENT
     Dates: start: 20100422
  22. FRESENIUS 2008K [Concomitant]
  23. FRESENIUS COLLECTIVE CONCENTRATES- GRANUFLO/NATURALYTE [Concomitant]
  24. OYSTER SHELL [Concomitant]
     Active Substance: OSTREA EDULIS SHELL

REACTIONS (8)
  - Cardiac hypertrophy [None]
  - Cardio-respiratory arrest [None]
  - Myocardial fibrosis [None]
  - Arteriosclerosis coronary artery [None]
  - Loss of consciousness [None]
  - Myocardial infarction [None]
  - Ventricular fibrillation [None]
  - Myositis [None]

NARRATIVE: CASE EVENT DATE: 20100422
